FAERS Safety Report 7791504-2 (Version None)
Quarter: 2011Q4

REPORT INFORMATION
  Report Type: 
  Country: None (occurrence: None)
  Receive Date: 20111003
  Receipt Date: 20110926
  Transmission Date: 20120403
  Serious: Yes (Other)
  Sender: FDA-Public Use
  Company Number: PT-UCBSA-042280

PATIENT
  Age: 9 Month
  Sex: Female

DRUGS (1)
  1. KEPPRA [Suspect]
     Route: 048

REACTIONS (1)
  - INCORRECT DOSE ADMINISTERED [None]
